FAERS Safety Report 8372745-2 (Version None)
Quarter: 2012Q2

REPORT INFORMATION
  Report Type: 
  Country: None (occurrence: None)
  Receive Date: 20120521
  Receipt Date: 20120510
  Transmission Date: 20120825
  Serious: Yes (Hospitalization)
  Sender: FDA-Public Use
  Company Number: GB-ASTELLAS-2012EU003407

PATIENT
  Sex: Female
  Weight: 74 kg

DRUGS (16)
  1. VESICARE [Suspect]
     Indication: HYPERTONIC BLADDER
     Dosage: 5 MG, UNKNOWN/D
     Route: 048
     Dates: start: 20120405, end: 20120501
  2. ISOSORBIDE MONONITRATE [Concomitant]
     Dosage: 20 MG, BID
     Route: 048
  3. VESICARE [Suspect]
     Dosage: 10 MG, UID/QD
     Route: 048
     Dates: start: 20120501
  4. FLUDROCORTISONE ACETATE [Concomitant]
     Dosage: UNK
     Route: 048
  5. ATENOLOL [Concomitant]
     Dosage: 1 DF, UID/QD
     Route: 048
  6. PREDNISOLONE [Concomitant]
     Dosage: 40 MG, UNKNOWN/D
     Route: 048
  7. PRAMIPEXOLE DIHYDROCHLORIDE [Concomitant]
     Dosage: 1 DF, UID/QD
     Route: 048
  8. FENTANYL-100 [Concomitant]
     Dosage: 1 DF, OTHER
     Route: 061
  9. HYDROCORTISONE [Concomitant]
     Dosage: UNK
     Route: 048
  10. MESALAMINE [Concomitant]
     Dosage: 1 DF, UNKNOWN/D
     Route: 054
  11. MESALAMINE [Concomitant]
     Dosage: 2 DF, BID
     Route: 048
  12. OXYBUTYNIN [Concomitant]
     Dosage: UNK
     Route: 048
  13. EZETIMIBE [Concomitant]
     Dosage: 10 MG, UNKNOWN/D
     Route: 048
  14. CLONAZEPAM [Concomitant]
     Dosage: 1 DF, PRN
     Route: 048
  15. MORPHINE SULFATE [Concomitant]
     Dosage: 60 MG, BID
     Route: 065
  16. PREDNISOLONE [Concomitant]
     Dosage: 5 MG, WEEKLY
     Route: 048

REACTIONS (7)
  - DRY MOUTH [None]
  - COLITIS ULCERATIVE [None]
  - DISTURBANCE IN ATTENTION [None]
  - DRY EYE [None]
  - DEHYDRATION [None]
  - CIRCULATORY COLLAPSE [None]
  - DIARRHOEA [None]
